FAERS Safety Report 9186569 (Version 1)
Quarter: 2013Q1

REPORT INFORMATION
  Report Type: Spontaneous
  Country: US (occurrence: US)
  Receive Date: 20130325
  Receipt Date: 20130325
  Transmission Date: 20140127
  Serious: No
  Sender: FDA-Public Use
  Company Number: US-PFIZER INC-2013094784

PATIENT
  Age: 59 Year
  Sex: Female
  Weight: 92.97 kg

DRUGS (5)
  1. VENLAFAXINE HYDROCHLORIDE [Suspect]
     Indication: ANXIETY
     Dosage: 50 MG, 1X/DAY
     Route: 048
     Dates: start: 201206, end: 2012
  2. VENLAFAXINE HYDROCHLORIDE [Suspect]
     Dosage: 150 MG, 1X/DAY
     Route: 048
     Dates: start: 2012, end: 201210
  3. VENLAFAXINE HYDROCHLORIDE [Suspect]
     Dosage: 187.5 MG, 1X/DAY
     Route: 048
     Dates: start: 201210, end: 201211
  4. VENLAFAXINE HYDROCHLORIDE [Suspect]
     Dosage: 150 MG, 1X/DAY
     Route: 048
     Dates: start: 201211
  5. LEVOTHYROXINE SODIUM [Concomitant]
     Indication: HYPOTHYROIDISM
     Dosage: 100 MG, 1X/DAY

REACTIONS (3)
  - Rash [Recovered/Resolved]
  - Nausea [Recovered/Resolved]
  - Weight increased [Not Recovered/Not Resolved]
